FAERS Safety Report 19574734 (Version 4)
Quarter: 2022Q1

REPORT INFORMATION
  Report Type: Spontaneous
  Country: US (occurrence: US)
  Receive Date: 20210719
  Receipt Date: 20220124
  Transmission Date: 20220423
  Serious: No
  Sender: FDA-Public Use
  Company Number: US-ORGANON-US20210701119

PATIENT
  Sex: Female
  Weight: 99.773 kg

DRUGS (1)
  1. NEXPLANON [Suspect]
     Active Substance: ETONOGESTREL
     Indication: Contraception
     Dosage: 1 IMPLANT EVERY THREE YEARS, IN RIGHT ARM
     Route: 059
     Dates: start: 20210112, end: 20210715

REACTIONS (4)
  - Pain in extremity [Not Recovered/Not Resolved]
  - Paraesthesia [Unknown]
  - Discomfort [Unknown]
  - Device placement issue [Recovered/Resolved]

NARRATIVE: CASE EVENT DATE: 20210101
